FAERS Safety Report 5874527-X (Version None)
Quarter: 2008Q3

REPORT INFORMATION
  Report Type: 
  Country: None (occurrence: None)
  Receive Date: 20080909
  Receipt Date: 20080901
  Transmission Date: 20090109
  Serious: Yes (Other)
  Sender: FDA-Public Use
  Company Number: PHHY2008DE19842

PATIENT
  Sex: Male

DRUGS (2)
  1. ZOMETA [Suspect]
     Dosage: 4 MG
     Route: 042
     Dates: start: 20041001
  2. ZOMETA [Suspect]
     Dosage: 4 MG EVERY THREEE MONTHS
     Route: 042
     Dates: start: 20060101

REACTIONS (1)
  - OSTEONECROSIS [None]
